FAERS Safety Report 9658856 (Version 5)
Quarter: 2013Q4

REPORT INFORMATION
  Report Type: Report from Study
  Country: US (occurrence: US)
  Receive Date: 20131030
  Receipt Date: 20131213
  Transmission Date: 20140711
  Serious: Yes (Hospitalization)
  Sender: FDA-Public Use
  Company Number: US-ABBVIE-13P-163-1161558-00

PATIENT
  Age: 75 Year
  Sex: Female
  Weight: 83.46 kg

DRUGS (17)
  1. VALPROIC ACID [Suspect]
     Indication: CONVULSION
     Route: 048
     Dates: start: 20130908, end: 20130914
  2. UNKNOWN MEDICATION [Suspect]
     Indication: STAPHYLOCOCCAL BACTERAEMIA
     Route: 042
     Dates: start: 20130904, end: 20130911
  3. CHLORTHALIDONE [Suspect]
     Indication: HYPERTENSION
     Dosage: 25 MG QAM
     Route: 048
     Dates: start: 20130918, end: 20130926
  4. ALPHAGAN [Concomitant]
     Indication: PRODUCT USED FOR UNKNOWN INDICATION
     Route: 047
  5. BENZONATATE [Concomitant]
     Indication: COUGH
     Dosage: 200 MG, TID, PRN
     Route: 048
     Dates: start: 20130911
  6. CALCIUM CITRATE WITH VITAMIN D [Concomitant]
     Indication: PRODUCT USED FOR UNKNOWN INDICATION
     Dosage: EVERY MORNING
     Route: 048
     Dates: start: 20130911
  7. DOCUSATE [Concomitant]
     Indication: CONSTIPATION
     Dosage: 100 MG, BID, PRN
     Route: 048
     Dates: start: 20130828
  8. ENABLEX [Concomitant]
     Indication: PRODUCT USED FOR UNKNOWN INDICATION
     Dosage: EVERY MORNING
     Route: 048
  9. FEXOFENADINE [Concomitant]
     Indication: PRODUCT USED FOR UNKNOWN INDICATION
     Dosage: EVERY MORNING
     Route: 048
  10. KEPPRA [Concomitant]
     Indication: PRODUCT USED FOR UNKNOWN INDICATION
     Route: 048
  11. LUMIGAN [Concomitant]
     Indication: PRODUCT USED FOR UNKNOWN INDICATION
     Dosage: 1 GTT AT BEDTIME
     Route: 047
  12. MONTELUKAST [Concomitant]
     Indication: PRODUCT USED FOR UNKNOWN INDICATION
     Dosage: AT BEDTIME
     Route: 048
  13. MULTIVITAMIN [Concomitant]
     Indication: PRODUCT USED FOR UNKNOWN INDICATION
     Dosage: EVERY MORNING
     Route: 048
  14. PRAVASTATIN [Concomitant]
     Indication: PRODUCT USED FOR UNKNOWN INDICATION
     Dosage: EVERY MORNING
     Route: 048
  15. VIMPAT [Concomitant]
     Indication: PRODUCT USED FOR UNKNOWN INDICATION
     Route: 048
  16. LINEZOLID [Concomitant]
     Indication: STAPHYLOCOCCAL BACTERAEMIA
     Route: 048
     Dates: start: 20130911, end: 20130914
  17. VANCOMYCIN [Concomitant]
     Indication: STAPHYLOCOCCAL BACTERAEMIA
     Route: 042
     Dates: start: 20130916, end: 20130930

REACTIONS (15)
  - Mental status changes [Unknown]
  - Convulsion [Recovered/Resolved]
  - Metabolic encephalopathy [Recovered/Resolved]
  - Hyponatraemia [Recovered/Resolved]
  - Hypokalaemia [Recovered/Resolved]
  - Hypercalcaemia [Recovered/Resolved]
  - Urinary tract infection [Recovered/Resolved]
  - Hypoglycaemia [Recovered/Resolved]
  - Deep vein thrombosis [Recovered/Resolved]
  - Blood pressure abnormal [Unknown]
  - Brain natriuretic peptide increased [Unknown]
  - Insomnia [Unknown]
  - Staphylococcal bacteraemia [Unknown]
  - Thrombophlebitis [Unknown]
  - Cardiac failure congestive [Unknown]
